FAERS Safety Report 6069234-7 (Version None)
Quarter: 2009Q1

REPORT INFORMATION
  Report Type: 
  Country: None (occurrence: None)
  Receive Date: 20090206
  Receipt Date: 20090202
  Transmission Date: 20090719
  Serious: Yes (Life-Threatening, Hospitalization, Other)
  Sender: FDA-Public Use
  Company Number: PHEH2009US01099

PATIENT
  Sex: Female

DRUGS (11)
  1. DIOVAN HCT [Suspect]
     Dosage: 320MGVAL/12.5MGHCT, UNK
  2. CRESTOR [Concomitant]
     Indication: HYPERCHOLESTEROLAEMIA
     Dosage: 10 MG, QD
     Route: 048
  3. ASPIRIN [Concomitant]
     Dosage: 81 MG, QD
     Route: 048
  4. MOBIC [Concomitant]
     Dosage: 7.5 MG, QD
     Route: 048
  5. METOPROLOL TARTRATE [Concomitant]
     Dosage: 25 MG, QD
     Route: 048
  6. FISH OIL [Concomitant]
     Dosage: 1000 MG, QD
     Route: 048
  7. CENTRUM SILVER [Concomitant]
     Dosage: 1 DF, QD
     Route: 048
  8. CALCIUM W/VITAMIN D NOS [Concomitant]
     Dosage: 1 DF, QD
     Route: 048
  9. ZINC [Concomitant]
     Dosage: 50 MG, QD
     Route: 048
  10. GLUCOSAMINE SULFATE W/CHONDROITIN SULFATE /MSM [Concomitant]
     Dosage: 1500MG/1200MG/1000MG
     Route: 048
  11. NITROGLYCERIN [Concomitant]
     Indication: CHEST PAIN
     Dosage: 0.4 MG, PRN
     Route: 060

REACTIONS (8)
  - DEHYDRATION [None]
  - DIZZINESS [None]
  - DYSPNOEA [None]
  - FEELING ABNORMAL [None]
  - MYOCARDIAL INFARCTION [None]
  - NAUSEA [None]
  - RETCHING [None]
  - VOMITING [None]
